FAERS Safety Report 17054886 (Version 1)
Quarter: 2019Q4

REPORT INFORMATION
  Report Type: Spontaneous
  Country: US (occurrence: US)
  Receive Date: 20191120
  Receipt Date: 20191120
  Transmission Date: 20200122
  Serious: No
  Sender: FDA-Public Use
  Company Number: US-SA-2019SA231550

PATIENT
  Age: 58 Year
  Sex: Female

DRUGS (1)
  1. MULTAQ [Suspect]
     Active Substance: DRONEDARONE
     Dosage: 400 UNK, BID
     Route: 048
     Dates: start: 201511, end: 201909

REACTIONS (3)
  - Swelling [Unknown]
  - Dizziness [Unknown]
  - Dyspnoea [Unknown]
